FAERS Safety Report 13329612 (Version 1)
Quarter: 2017Q1

REPORT INFORMATION
  Report Type: Spontaneous
  Country: IT (occurrence: IT)
  Receive Date: 20170313
  Receipt Date: 20170313
  Transmission Date: 20170428
  Serious: Yes (Hospitalization, Other)
  Sender: FDA-Public Use
  Company Number: IT-GLAXOSMITHKLINE-IT2017GSK033792

PATIENT
  Age: 80 Year
  Weight: 73 kg

DRUGS (2)
  1. OKI [Suspect]
     Active Substance: KETOPROFEN LYSINE
     Indication: OSTEOARTHRITIS
     Dosage: UNK
     Dates: start: 20160930, end: 20161130
  2. VOLTAREN [Suspect]
     Active Substance: DICLOFENAC SODIUM
     Indication: OSTEOARTHRITIS
     Dosage: 1 DF, QD
     Route: 048
     Dates: start: 20160930, end: 20161130

REACTIONS (7)
  - Haematemesis [Recovering/Resolving]
  - Gastroduodenitis [Recovering/Resolving]
  - Dyspnoea [Unknown]
  - Anaemia [Recovering/Resolving]
  - Asthenia [Recovering/Resolving]
  - Melaena [Recovering/Resolving]
  - Drug interaction [Unknown]

NARRATIVE: CASE EVENT DATE: 20170222
